FAERS Safety Report 9420199 (Version 2)
Quarter: 2013Q4

REPORT INFORMATION
  Report Type: Spontaneous
  Country: US (occurrence: US)
  Receive Date: 20130725
  Receipt Date: 20131025
  Transmission Date: 20140711
  Serious: Yes (Life-Threatening, Other)
  Sender: FDA-Public Use
  Company Number: US-BAYER-2013-089362

PATIENT
  Age: 31 Year
  Sex: Female
  Weight: 49.89 kg

DRUGS (1)
  1. MIRENA [Suspect]
     Indication: CONTRACEPTION
     Dosage: 20 MCG/24HR, CONT
     Route: 015
     Dates: start: 20091201, end: 20100727

REACTIONS (14)
  - Uterine perforation [None]
  - Uterine injury [None]
  - Abortion spontaneous [None]
  - Infection [None]
  - Uterine pain [None]
  - Injury [None]
  - Anxiety [None]
  - Anhedonia [None]
  - General physical health deterioration [None]
  - Deformity [None]
  - Device difficult to use [None]
  - Medical device pain [None]
  - Scar [None]
  - Procedural pain [None]
